FAERS Safety Report 7366985-9 (Version None)
Quarter: 2011Q1

REPORT INFORMATION
  Report Type: 
  Country: None (occurrence: None)
  Receive Date: 20110322
  Receipt Date: 20110311
  Transmission Date: 20110831
  Serious: Yes (Other)
  Sender: FDA-Public Use
  Company Number: US-PFIZER INC-2006069797

PATIENT
  Sex: Male

DRUGS (9)
  1. NEURONTIN [Suspect]
     Dosage: 600 MG, 2X/DAY
     Dates: start: 20031007
  2. NEURONTIN [Suspect]
     Indication: ILL-DEFINED DISORDER
     Dosage: 600 MG, UNK
     Dates: start: 20030604
  3. NEURONTIN [Suspect]
     Dosage: 600 MG, 3X/DAY
     Dates: start: 20030623
  4. NEURONTIN [Suspect]
     Dosage: 600 MG, 2X/DAY
     Dates: start: 20030724
  5. NEURONTIN [Suspect]
     Dosage: 600 MG, 3X/DAY
     Dates: start: 20030609
  6. NEURONTIN [Suspect]
     Dosage: 600 MG, 2X/DAY
     Dates: start: 20030701
  7. NEURONTIN [Suspect]
     Dosage: 600 MG, UNK
     Dates: start: 20030613
  8. NEURONTIN [Suspect]
     Dosage: 600 MG, 2X/DAY
     Dates: start: 20030821
  9. NEURONTIN [Suspect]
     Dosage: 600 MG, 2X/DAY
     Dates: start: 20031016

REACTIONS (2)
  - SUICIDE ATTEMPT [None]
  - SUICIDAL IDEATION [None]
